FAERS Safety Report 18121697 (Version 3)
Quarter: 2020Q4

REPORT INFORMATION
  Report Type: Spontaneous
  Country: US (occurrence: US)
  Receive Date: 20200807
  Receipt Date: 20201103
  Transmission Date: 20210113
  Serious: Yes (Hospitalization, Other)
  Sender: FDA-Public Use
  Company Number: US-B.I. PHARMACEUTICALS,INC./RIDGEFIELD-2020-BI-040192

PATIENT
  Age: 72 Year
  Sex: Female
  Weight: 80.74 kg

DRUGS (31)
  1. CELEXA [CELECOXIB] [Concomitant]
     Active Substance: CELECOXIB
     Indication: ANXIETY
  2. METOPROLOL SUCCINATE. [Concomitant]
     Active Substance: METOPROLOL SUCCINATE
     Indication: BLOOD PRESSURE MEASUREMENT
     Dosage: TAKE 1 TABLET BY ORAL ROUTE EVERY DAY
     Route: 048
     Dates: start: 20180523
  3. ONGLYZA [Concomitant]
     Active Substance: SAXAGLIPTIN HYDROCHLORIDE
     Indication: DIABETES MELLITUS
     Dosage: TAKE 1 TABLET BY MOTH EVERY DAY
     Route: 048
     Dates: start: 20180523
  4. SINGULAIR [Concomitant]
     Active Substance: MONTELUKAST SODIUM
     Indication: ASTHMA
     Dosage: TAKE 1 TABLET BY MOUTH EVERYDAY IN THE EVENING
     Route: 048
     Dates: start: 20180523
  5. NEURONTIN [Concomitant]
     Active Substance: GABAPENTIN
     Indication: RESTLESS LEGS SYNDROME
     Dosage: TAKE 1 CAPSULE BY MOUTH EVERY BEDTIME
     Route: 048
     Dates: start: 20180523
  6. POTASSIUM CHLORIDE. [Concomitant]
     Active Substance: POTASSIUM CHLORIDE
     Indication: PRODUCT USED FOR UNKNOWN INDICATION
     Dosage: TAKE 1 TABLET BY MOUTH EVERYDAY WITH FOOD, TO TAKE ALONG WITH LASIX
     Route: 048
     Dates: start: 20180523
  7. PREDNISONE. [Concomitant]
     Active Substance: PREDNISONE
     Indication: PRODUCT USED FOR UNKNOWN INDICATION
     Dosage: TAKE 6 TABLETS PO DAILY FOR 2 DAYS
     Route: 048
     Dates: start: 20180221
  8. CELEXA [CELECOXIB] [Concomitant]
     Active Substance: CELECOXIB
     Indication: DEPRESSION
     Dosage: TAKE 1 AND 1/2 TABLET BY MOUTH EVERY DAY
     Route: 048
     Dates: start: 20180523
  9. PROVENTIL HFA [Concomitant]
     Active Substance: ALBUTEROL SULFATE
     Indication: PRODUCT USED FOR UNKNOWN INDICATION
     Dosage: INHALE 2 PUFF BY INHALATION ROUTE EVERY 4-6 HOURS AS NEEDED FREQUENCY:
     Route: 055
     Dates: start: 20180523
  10. DULERA [Concomitant]
     Active Substance: FORMOTEROL FUMARATE DIHYDRATE\MOMETASONE FUROATE
     Indication: PRODUCT USED FOR UNKNOWN INDICATION
     Dosage: INHALE 2 PUFFS BY MOUTH 2 TIMES EVERY DAY IN THE MORNING AND EVENING
     Route: 055
     Dates: start: 20180523
  11. LIPITOR [Concomitant]
     Active Substance: ATORVASTATIN CALCIUM
     Indication: BLOOD CHOLESTEROL
     Dosage: TAKE 1 TABLET BY MOUTH EVERYDAY
     Route: 048
     Dates: start: 20180523
  12. REFRESH TEARS [Concomitant]
     Active Substance: CARBOXYMETHYLCELLULOSE SODIUM
     Indication: PRODUCT USED FOR UNKNOWN INDICATION
     Dosage: 2 DROPS PER EYE
     Dates: start: 20180523
  13. LISINOPRIL. [Concomitant]
     Active Substance: LISINOPRIL
     Indication: BLOOD PRESSURE MEASUREMENT
     Dosage: TAKE 1 TABLET BY MOTH EVERYDAY
     Route: 048
     Dates: start: 20180523
  14. VISTARIL [HYDROXYZINE HYDROCHLORIDE] [Concomitant]
     Indication: ANXIETY
     Dosage: TAKE 1 CAPSULE BY MOTH 4 TIMES EVERY DAY AS NEEDED FREQUENCY:
     Route: 048
     Dates: start: 20180523
  15. VISTARIL [HYDROXYZINE HYDROCHLORIDE] [Concomitant]
     Indication: PRURITUS
  16. VITAMIN D2 [Concomitant]
     Active Substance: ERGOCALCIFEROL
     Indication: BONE DISORDER
     Dosage: TAKE 1 CAPSULE BY MOTH EVERY WEEK
     Route: 048
     Dates: start: 20180523
  17. MEDROL [Concomitant]
     Active Substance: METHYLPREDNISOLONE
     Indication: PRODUCT USED FOR UNKNOWN INDICATION
     Route: 065
     Dates: start: 20180523
  18. PREDNISONE. [Concomitant]
     Active Substance: PREDNISONE
     Dosage: 2 TABS PO DIALY FOR 2 DAYS
     Route: 048
  19. CYANOCOBALAMIN. [Concomitant]
     Active Substance: CYANOCOBALAMIN
     Indication: PRODUCT USED FOR UNKNOWN INDICATION
     Dosage: INJECT 0.1 MILLILITER INTO THE MUSCLE EVERY MONTH
     Route: 065
     Dates: start: 20171003
  20. LASIX [Concomitant]
     Active Substance: FUROSEMIDE
     Indication: FLUID RETENTION
     Dosage: TAKE 1 TABLET BY MOUTH EVERYDAY FOR FLUID RETENTION, TAKE WITH POTASSIUM
     Route: 048
     Dates: start: 20180523
  21. LISINOPRIL. [Concomitant]
     Active Substance: LISINOPRIL
     Indication: RENAL DISORDER
  22. SPIRIVA RESPIMAT [Concomitant]
     Active Substance: TIOTROPIUM BROMIDE
     Indication: CHRONIC OBSTRUCTIVE PULMONARY DISEASE
     Dosage: USE 2 INHALATIONS TREATMENT DAILY
     Route: 055
     Dates: start: 20180523
  23. FOSAMAX [Concomitant]
     Active Substance: ALENDRONATE SODIUM
     Indication: PRODUCT USED FOR UNKNOWN INDICATION
     Dosage: TAKE 1 TABLET BY MOUTH EVERY WEEK IN THE MORNING, AT LEAST 30 MINUTES BEFORE THE FIRST FOOD, BEVERAG
     Route: 048
     Dates: start: 20180523
  24. PLAVIX [Concomitant]
     Active Substance: CLOPIDOGREL BISULFATE
     Indication: ANTICOAGULANT THERAPY
     Dosage: TAKE 1 TABLET BY MOTH EVERYDAY
     Route: 048
     Dates: start: 20180523
  25. SINGULAIR [Concomitant]
     Active Substance: MONTELUKAST SODIUM
     Indication: MULTIPLE ALLERGIES
  26. ZYRTEC [Concomitant]
     Active Substance: CETIRIZINE HYDROCHLORIDE
     Indication: MULTIPLE ALLERGIES
     Dosage: TAKE 1 TABLET BY MOTH EVERYDAY
     Route: 048
     Dates: start: 20180523
  27. PREDNISONE. [Concomitant]
     Active Substance: PREDNISONE
     Dosage: 4 TABS PO DIALY FOR 2 DAYS
     Route: 048
  28. PREDNISONE. [Concomitant]
     Active Substance: PREDNISONE
     Dosage: 1 TABS PO DIALY FOR 2 DAYS
     Route: 048
  29. JARDIANCE [Suspect]
     Active Substance: EMPAGLIFLOZIN
     Indication: TYPE 2 DIABETES MELLITUS
     Dosage: TAKE 1 TABLET BY ORAL ROUTE EVERYDAY IN THE MORNING FOR DIABETES
     Route: 048
     Dates: start: 20180523
  30. ASPIRIN [ACETYLSALICYLIC ACID] [Concomitant]
     Active Substance: ASPIRIN
     Indication: CARDIOVASCULAR DISORDER
     Dosage: DELAYED RELEASE?TAKE 1 TABLET BY MOUTH EVERYDAY
     Route: 048
     Dates: start: 20180523
  31. ZANTAC [Concomitant]
     Active Substance: RANITIDINE HYDROCHLORIDE
     Indication: ABDOMINAL DISCOMFORT
     Dosage: TAKE 1 TABLET BY MOUTH 2 TIMES EVERYDAY
     Route: 048
     Dates: start: 20180523

REACTIONS (1)
  - Fournier^s gangrene [Unknown]

NARRATIVE: CASE EVENT DATE: 20180615
